FAERS Safety Report 4523065-5 (Version None)
Quarter: 2004Q4

REPORT INFORMATION
  Report Type: 
  Country: None (occurrence: None)
  Receive Date: 20041208
  Receipt Date: 20041125
  Transmission Date: 20050328
  Serious: Yes (Hospitalization)
  Sender: FDA-Public Use
  Company Number: 2004098572

PATIENT
  Age: 32 Year
  Sex: Male

DRUGS (3)
  1. SULPERAZONE (SULBACTAM, CEFOPERAZONE) [Suspect]
     Indication: STAPHYLOCOCCAL BACTERAEMIA
     Dosage: 3 GRAM (1.5 GRAM, 2 IN 1 D), INTRAVENOUS
     Route: 042
     Dates: start: 20041001
  2. CEFEPIME (CEFEPIME) [Concomitant]
  3. METRONIDAZOLE [Concomitant]

REACTIONS (3)
  - LIVER FUNCTION TEST ABNORMAL [None]
  - MEDICAL DEVICE COMPLICATION [None]
  - PNEUMONIA [None]
